FAERS Safety Report 21016062 (Version 1)
Quarter: 2022Q2

REPORT INFORMATION
  Report Type: Spontaneous
  Country: US (occurrence: None)
  Receive Date: 20220627
  Receipt Date: 20220627
  Transmission Date: 20220721
  Serious: Yes (Hospitalization)
  Sender: FDA-Public Use
  Company Number: None

PATIENT
  Age: 66 Year
  Sex: Male

DRUGS (2)
  1. ASPIRIN [Suspect]
     Active Substance: ASPIRIN
     Indication: Coronary artery disease
     Dates: start: 20200819
  2. MELOXICAM [Suspect]
     Active Substance: MELOXICAM
     Indication: Pain
     Dates: start: 20200604

REACTIONS (5)
  - Haematemesis [None]
  - Abdominal pain upper [None]
  - Haemorrhage [None]
  - Helicobacter infection [None]
  - Gastric haemorrhage [None]

NARRATIVE: CASE EVENT DATE: 20220608
